FAERS Safety Report 5062665-3 (Version None)
Quarter: 2006Q3

REPORT INFORMATION
  Report Type: 
  Country: None (occurrence: None)
  Receive Date: 20060724
  Receipt Date: 20060724
  Transmission Date: 20061208
  Serious: Yes (Life-Threatening, Hospitalization)
  Sender: FDA-Public Use
  Company Number: None

PATIENT
  Age: 69 Year
  Sex: Male

DRUGS (4)
  1. CETACAINE SPRAY 14% BENZOCAIN, 2% TETRACAINE, CETYLITE INDUSTRIES, INC [Suspect]
     Indication: ANAESTHESIA
     Dosage: ONCE NASAL
     Route: 045
  2. CETACAINE SPRAY 14% BENZOCAIN, 2% TETRACAINE, CETYLITE INDUSTRIES, INC [Suspect]
     Indication: BRONCHOSCOPY
     Dosage: ONCE NASAL
     Route: 045
  3. XYLOCAINE [Suspect]
     Indication: ANAESTHESIA
     Dosage: 4 ML ONCE PO
     Route: 048
  4. XYLOCAINE [Suspect]
     Indication: BRONCHOSCOPY
     Dosage: 4 ML ONCE PO
     Route: 048

REACTIONS (7)
  - GENERAL PHYSICAL HEALTH DETERIORATION [None]
  - HYPOVENTILATION [None]
  - LUNG DISORDER [None]
  - METHAEMOGLOBINAEMIA [None]
  - OXYGEN SATURATION DECREASED [None]
  - RENAL FAILURE [None]
  - SKIN DISCOLOURATION [None]
